FAERS Safety Report 5696387-2 (Version None)
Quarter: 2008Q2

REPORT INFORMATION
  Report Type: 
  Country: None (occurrence: None)
  Receive Date: 20080408
  Receipt Date: 20080328
  Transmission Date: 20081010
  Serious: Yes (Other)
  Sender: FDA-Public Use
  Company Number: JP-PFIZER INC-2008028475

PATIENT
  Age: 56 Year
  Sex: Female

DRUGS (1)
  1. NORVASC [Suspect]
     Dosage: DAILY DOSE:2.5MG
     Route: 048
     Dates: start: 20080222, end: 20080229

REACTIONS (6)
  - BLOOD CREATINE PHOSPHOKINASE INCREASED [None]
  - FACE OEDEMA [None]
  - INDURATION [None]
  - MUCOSAL INFLAMMATION [None]
  - MUSCULAR WEAKNESS [None]
  - PROTEINURIA [None]
